FAERS Safety Report 25225706 (Version 1)
Quarter: 2025Q2

REPORT INFORMATION
  Report Type: Spontaneous
  Country: DE (occurrence: DE)
  Receive Date: 20250422
  Receipt Date: 20250422
  Transmission Date: 20250716
  Serious: Yes (Other)
  Sender: AMGEN
  Company Number: DE-AMGEN-DEUSP2025076922

PATIENT
  Age: 17 Year

DRUGS (6)
  1. PREDNISONE [Suspect]
     Active Substance: PREDNISONE
     Indication: Dermatomyositis
     Route: 065
  2. PREDNISONE [Suspect]
     Active Substance: PREDNISONE
     Route: 065
  3. METHYLPREDNISOLONE [Concomitant]
     Active Substance: METHYLPREDNISOLONE
  4. MYCOPHENOLATE MOFETIL [Concomitant]
     Active Substance: MYCOPHENOLATE MOFETIL
  5. RITUXIMAB [Concomitant]
     Active Substance: RITUXIMAB
  6. TOFACITINIB [Concomitant]
     Active Substance: TOFACITINIB

REACTIONS (3)
  - Cytomegalovirus infection reactivation [Unknown]
  - Aspergillus infection [Unknown]
  - Pneumonia [Unknown]
